FAERS Safety Report 4776430-5 (Version None)
Quarter: 2005Q3

REPORT INFORMATION
  Report Type: 
  Country: None (occurrence: None)
  Receive Date: 20050922
  Receipt Date: 20050912
  Transmission Date: 20060218
  Serious: Yes (Hospitalization)
  Sender: FDA-Public Use
  Company Number: DE-ABBOTT-05P-062-0311002-00

PATIENT
  Sex: Female
  Weight: 50 kg

DRUGS (5)
  1. BIAXIN [Suspect]
     Indication: SUICIDE ATTEMPT
     Route: 048
     Dates: start: 20050912, end: 20050912
  2. PANTOZOL [Suspect]
     Indication: SUICIDE ATTEMPT
     Route: 048
     Dates: start: 20050912, end: 20050912
  3. AMITRIPTYLINE HCL [Suspect]
     Indication: SUICIDE ATTEMPT
     Route: 048
     Dates: start: 20050912, end: 20050912
  4. METRONIDAZOLE [Suspect]
     Indication: SUICIDE ATTEMPT
     Route: 048
     Dates: start: 20050912, end: 20050912
  5. ETHANOL [Suspect]
     Indication: SUICIDE ATTEMPT
     Route: 048
     Dates: start: 20050912, end: 20050912

REACTIONS (6)
  - COMA [None]
  - DYSARTHRIA [None]
  - OVERDOSE [None]
  - SUICIDE ATTEMPT [None]
  - TACHYCARDIA [None]
  - VOMITING [None]
